FAERS Safety Report 17294285 (Version 1)
Quarter: 2020Q1

REPORT INFORMATION
  Report Type: Spontaneous
  Country: ES (occurrence: ES)
  Receive Date: 20200121
  Receipt Date: 20200121
  Transmission Date: 20200409
  Serious: Yes (Other)
  Sender: FDA-Public Use
  Company Number: ES-TEVA-2020-ES-1170734

PATIENT
  Age: 84 Year
  Sex: Male

DRUGS (5)
  1. PARACETAMOL KERN PHARMA 650 MG COMPRIMIDOS EFG, 40 COMPRIMIDOS [Concomitant]
     Dosage: 650 MG
     Route: 048
     Dates: start: 20191106
  2. OMEPRAZOL KERN PHARMA 20 MG CAPSULAS DURAS GASTRORRESISTENTES EFG , 28 [Concomitant]
     Dosage: 20 MG
     Route: 048
     Dates: start: 20120429
  3. PERMIXON 160 MG CAPSULAS DURAS, 60 C?PSULAS [Concomitant]
     Dosage: 160 MG
     Route: 048
     Dates: start: 20140708
  4. LOSARTAN TEVA 50 MG COMPRIMIDOS RECUBIERTOS CON PELICULA EFG , 28 COMP [Suspect]
     Active Substance: LOSARTAN
     Indication: HYPERTENSION
     Dosage: 50 MG
     Route: 048
     Dates: start: 20190102, end: 20191114
  5. NOBRITOL, 60 C?PSULAS [Concomitant]
     Dosage: 1 DOSAGE FORMS
     Route: 048
     Dates: start: 20120320

REACTIONS (1)
  - Hyperkalaemia [Recovered/Resolved]

NARRATIVE: CASE EVENT DATE: 20191013
